FAERS Safety Report 8226796-9 (Version None)
Quarter: 2012Q1

REPORT INFORMATION
  Report Type: 
  Country: None (occurrence: None)
  Receive Date: 20120322
  Receipt Date: 20120313
  Transmission Date: 20120608
  Serious: Yes (Hospitalization)
  Sender: FDA-Public Use
  Company Number: US-BAYER-2012-025367

PATIENT
  Age: 40 Year
  Sex: Female
  Weight: 49.977 kg

DRUGS (8)
  1. SENOKOT [Concomitant]
  2. METHOCARBAMOL [Concomitant]
     Dosage: 500 MG, UNK
  3. ACETAMINOPHEN [Concomitant]
     Dosage: 325 MG, UNK
  4. YAZ [Suspect]
     Indication: POLYCYSTIC OVARIES
     Dosage: UNK
     Dates: start: 20071001
  5. OXYCONTIN [Concomitant]
     Dosage: 10 MG, UNK
  6. OXYCODONE HCL [Concomitant]
     Dosage: 7.5 MG, UNK
  7. PERCOCET [Concomitant]
  8. MIRALAX [Concomitant]

REACTIONS (2)
  - PULMONARY EMBOLISM [None]
  - DEEP VEIN THROMBOSIS [None]
